FAERS Safety Report 11343748 (Version 1)
Quarter: 2015Q3

REPORT INFORMATION
  Report Type: Spontaneous
  Country: US (occurrence: US)
  Receive Date: 20150806
  Receipt Date: 20150806
  Transmission Date: 20151125
  Serious: Yes (Other)
  Sender: FDA-Public Use
  Company Number: US-HOSPIRA-2964886

PATIENT
  Age: 53 Year
  Sex: Female

DRUGS (2)
  1. AJMALINE [Suspect]
     Active Substance: AJMALINE
     Indication: ATRIOVENTRICULAR BLOCK FIRST DEGREE
  2. ISUPREL [Suspect]
     Active Substance: ISOPROTERENOL HYDROCHLORIDE
     Indication: VENTRICULAR TACHYCARDIA
     Dosage: 2.0 MCG/MIN
     Route: 041

REACTIONS (1)
  - Atrioventricular block [Recovered/Resolved]
